FAERS Safety Report 8446956-1 (Version None)
Quarter: 2012Q2

REPORT INFORMATION
  Report Type: 
  Country: None (occurrence: None)
  Receive Date: 20120613
  Receipt Date: 20120613
  Transmission Date: 20120825
  Serious: Yes (Disabling)
  Sender: FDA-Public Use
  Company Number: None

PATIENT
  Age: 23 Year
  Sex: Female
  Weight: 52.1637 kg

DRUGS (1)
  1. LARIAM [Suspect]
     Indication: MALARIA PROPHYLAXIS
     Dosage: 1 PILL 1XWEEK PO
     Route: 048
     Dates: start: 20020106, end: 20020316

REACTIONS (6)
  - ANGER [None]
  - VERTIGO [None]
  - PARANOIA [None]
  - MENTAL DISORDER [None]
  - EMOTIONAL DISORDER [None]
  - DEPRESSION [None]
